FAERS Safety Report 6063925-X (Version None)
Quarter: 2009Q1

REPORT INFORMATION
  Report Type: 
  Country: None (occurrence: None)
  Receive Date: 20090204
  Receipt Date: 20090123
  Transmission Date: 20090719
  Serious: Yes (Hospitalization, Other)
  Sender: FDA-Public Use
  Company Number: PHHY2009JP00607

PATIENT
  Sex: Female
  Weight: 45 kg

DRUGS (10)
  1. COMTAN [Interacting]
     Indication: DRUG EFFECT DECREASED
     Dosage: 400 MG DAILY
     Route: 048
     Dates: start: 20081203, end: 20081220
  2. SYMMETREL [Interacting]
     Indication: DRUG EFFECT DECREASED
     Dosage: 150MG
     Route: 048
     Dates: start: 20070313
  3. LEVODOPA [Interacting]
     Dosage: 400 MG DAILY
     Route: 048
  4. REQUIP [Interacting]
     Indication: DRUG EFFECT DECREASED
     Dosage: 3MG
     Route: 048
     Dates: start: 20080909
  5. EXCEGRAN [Interacting]
     Indication: DRUG EFFECT DECREASED
     Dosage: 50MG/DAY
     Route: 048
     Dates: start: 20070313
  6. FP-OD [Suspect]
     Indication: DRUG EFFECT DECREASED
     Dosage: 5 MG/DAY
     Route: 048
     Dates: start: 20070911
  7. MADOPAR [Suspect]
     Indication: DRUG EFFECT DECREASED
     Dosage: 400 MG/DAY
     Route: 048
     Dates: start: 20071005
  8. GRIMAC [Concomitant]
     Indication: GASTRITIS
     Dosage: 1.5MG, UNK
     Dates: start: 20070313
  9. COMELIAN [Concomitant]
     Dosage: 100MG, UNK
     Route: 048
     Dates: start: 20070313
  10. SODIUM PICOSULFATE [Concomitant]
     Indication: CONSTIPATION
     Dosage: UNK
     Route: 048
     Dates: start: 20070313

REACTIONS (6)
  - BEDRIDDEN [None]
  - DELUSION [None]
  - FALL [None]
  - HALLUCINATION [None]
  - OVERDOSE [None]
  - SURGERY [None]
